FAERS Safety Report 10739836 (Version 1)
Quarter: 2015Q1

REPORT INFORMATION
  Report Type: Spontaneous
  Country: US (occurrence: US)
  Receive Date: 20150127
  Receipt Date: 20150127
  Transmission Date: 20150721
  Serious: Yes (Hospitalization)
  Sender: FDA-Public Use
  Company Number: US-JNJFOC-20150111099

PATIENT
  Age: 23 Year
  Sex: Male

DRUGS (3)
  1. TYLENOL [Suspect]
     Active Substance: ACETAMINOPHEN
     Route: 048
  2. TYLENOL [Suspect]
     Active Substance: ACETAMINOPHEN
     Indication: SUICIDE ATTEMPT
     Dosage: 60 TO 70 TABLETS
     Route: 048
     Dates: start: 20110726, end: 20110726
  3. ASPIRIN. [Suspect]
     Active Substance: ASPIRIN
     Indication: SUICIDE ATTEMPT
     Route: 065
     Dates: start: 20110726, end: 20110726

REACTIONS (4)
  - Vomiting [Unknown]
  - Tachycardia [Unknown]
  - Intentional overdose [Unknown]
  - Hypertension [Unknown]

NARRATIVE: CASE EVENT DATE: 20110726
